FAERS Safety Report 9861102 (Version 1)
Quarter: 2014Q1

REPORT INFORMATION
  Report Type: Spontaneous
  Country: US (occurrence: US)
  Receive Date: 20140202
  Receipt Date: 20140202
  Transmission Date: 20141002
  Serious: No
  Sender: FDA-Public Use
  Company Number: US-ALLERGAN-1303419US

PATIENT
  Sex: Male

DRUGS (1)
  1. BOTOX COSMETIC [Suspect]
     Indication: ALLERGY TEST
     Dosage: UNK
     Dates: start: 20130306, end: 20130306

REACTIONS (1)
  - Injection site pain [Recovered/Resolved]
